FAERS Safety Report 8608055 (Version 4)
Quarter: 2014Q2

REPORT INFORMATION
  Report Type: Spontaneous
  Country: US (occurrence: US)
  Receive Date: 20120611
  Receipt Date: 20140403
  Transmission Date: 20141212
  Serious: Yes (Hospitalization, Disabling, Other)
  Sender: FDA-Public Use
  Company Number: US-ASTRAZENECA-2012SE35491

PATIENT
  Age: 48 Year
  Sex: Female

DRUGS (33)
  1. NEXIUM [Suspect]
     Indication: GASTROOESOPHAGEAL REFLUX DISEASE
     Route: 048
  2. NEXIUM [Suspect]
     Indication: HERNIA
     Route: 048
  3. NEXIUM [Suspect]
     Indication: GASTROOESOPHAGEAL REFLUX DISEASE
     Route: 048
     Dates: start: 1998, end: 2013
  4. NEXIUM [Suspect]
     Indication: HERNIA
     Route: 048
     Dates: start: 1998, end: 2013
  5. NEXIUM [Suspect]
     Indication: GASTROOESOPHAGEAL REFLUX DISEASE
     Route: 048
     Dates: start: 20070605
  6. NEXIUM [Suspect]
     Indication: HERNIA
     Route: 048
     Dates: start: 20070605
  7. TUMS [Concomitant]
  8. ZANTAC [Concomitant]
  9. TAGAMET [Concomitant]
  10. DARVOCET [Concomitant]
     Indication: PAIN
  11. ATIVAN [Concomitant]
     Indication: MUSCLE SPASMS
  12. ZOCOR [Concomitant]
     Indication: BLOOD CHOLESTEROL INCREASED
  13. MIRAPEX [Concomitant]
     Indication: MUSCLE SPASMS
  14. VIT. D [Concomitant]
     Indication: VITAMIN D DEFICIENCY
  15. SYNTHROID [Concomitant]
     Indication: THYROID DISORDER
  16. METOPROLOL [Concomitant]
     Indication: CARDIAC DISORDER
  17. MOBIC [Concomitant]
     Indication: ARTHRITIS
  18. LASIX [Concomitant]
     Indication: FLUID RETENTION
  19. PERCOCET [Concomitant]
     Indication: PAIN
  20. FENTANYL PATCH [Concomitant]
     Indication: PAIN
  21. FOSAMAX [Concomitant]
     Indication: OSTEOPOROSIS
  22. VIBRYD [Concomitant]
     Indication: OSTEOPOROSIS
  23. ZANAFLEX [Concomitant]
     Indication: MUSCLE SPASMS
  24. PREMARIN [Concomitant]
     Indication: HORMONE LEVEL ABNORMAL
     Dosage: 1.25 1 PER DAY
  25. CYMBALTA [Concomitant]
     Dates: start: 20070605
  26. DOXEPIN HCL [Concomitant]
     Dates: start: 20070609
  27. ZETIA [Concomitant]
     Dates: start: 20070609
  28. AMBIEN [Concomitant]
     Dates: start: 20070609
  29. MELOXICAM [Concomitant]
     Dates: start: 20070621
  30. FUROSEMIDE [Concomitant]
     Dates: start: 20090130
  31. FENTANYL [Concomitant]
     Dates: start: 20090204
  32. OXYCODONE/APAP [Concomitant]
     Dosage: 5-500 MG
     Dates: start: 20071228
  33. LYRICA [Concomitant]
     Dates: start: 20071227

REACTIONS (22)
  - Radius fracture [Unknown]
  - Wrist fracture [Unknown]
  - Femur fracture [Unknown]
  - Upper limb fracture [Unknown]
  - Appendix disorder [Unknown]
  - Pain [Unknown]
  - Fibromyalgia [Unknown]
  - Arthropathy [Unknown]
  - Osteoarthritis [Unknown]
  - Hand fracture [Unknown]
  - Lower limb fracture [Unknown]
  - Depression [Unknown]
  - Fall [Unknown]
  - Osteoporosis [Unknown]
  - Arthritis [Unknown]
  - Bone pain [Unknown]
  - Diabetes mellitus [Unknown]
  - Scoliosis [Unknown]
  - Vitamin D deficiency [Unknown]
  - Bone disorder [Unknown]
  - Stress fracture [Unknown]
  - Foot fracture [Unknown]
